FAERS Safety Report 8910669 (Version 1)
Quarter: 2012Q4

REPORT INFORMATION
  Report Type: Spontaneous
  Country: GB (occurrence: None)
  Receive Date: 20121113
  Receipt Date: 20121113
  Transmission Date: 20130627
  Serious: Yes (Other)
  Sender: FDA-Public Use
  Company Number: DKLU1086217

PATIENT

DRUGS (1)
  1. ONFI [Suspect]
     Route: 048

REACTIONS (1)
  - Hepatic function abnormal [None]
